FAERS Safety Report 8381316-3 (Version None)
Quarter: 2012Q2

REPORT INFORMATION
  Report Type: 
  Country: None (occurrence: None)
  Receive Date: 20120523
  Receipt Date: 20120516
  Transmission Date: 20120825
  Serious: Yes (Other)
  Sender: FDA-Public Use
  Company Number: FR-PFIZER INC-2012099146

PATIENT
  Age: 24 Year
  Sex: Female

DRUGS (2)
  1. NORDETTE-21 [Suspect]
     Indication: CONTRACEPTION
     Dosage: 1 DF, 1X/DAY
  2. NORDETTE-21 [Suspect]
     Dosage: UNK

REACTIONS (3)
  - ABORTION INDUCED [None]
  - DRUG INEFFECTIVE [None]
  - UNINTENDED PREGNANCY [None]
